APPROVED DRUG PRODUCT: INDERAL LA
Active Ingredient: PROPRANOLOL HYDROCHLORIDE
Strength: 80MG
Dosage Form/Route: CAPSULE, EXTENDED RELEASE;ORAL
Application: N018553 | Product #002 | TE Code: AB
Applicant: ANI PHARMACEUTICALS INC
Approved: Apr 19, 1983 | RLD: Yes | RS: No | Type: RX